FAERS Safety Report 4692917-8 (Version None)
Quarter: 2005Q2

REPORT INFORMATION
  Report Type: 
  Country: None (occurrence: None)
  Receive Date: 20050615
  Receipt Date: 20050516
  Transmission Date: 20051028
  Serious: Yes (Hospitalization)
  Sender: FDA-Public Use
  Company Number: A044-002-005569

PATIENT
  Age: 84 Year
  Sex: Male
  Weight: 92 kg

DRUGS (11)
  1. ARICEPT [Suspect]
     Indication: DEMENTIA ALZHEIMER'S TYPE
     Dosage: 5 MG, 1 IN 1 D, ORAL
     Route: 048
     Dates: start: 20050108, end: 20050307
  2. ADVANTAN (METHYLPRENISOLONE ACEPONATE) [Concomitant]
  3. ALLOPURINOL [Concomitant]
  4. AVAPRO HCT (KARVEA  HCT) [Concomitant]
  5. ELOCON [Concomitant]
  6. FGF (FERROUS SULFATE) [Concomitant]
  7. LOMOTIL [Concomitant]
  8. NEO-CYTAMEN (HYDROXOCOBALAMIN) [Concomitant]
  9. PANAMAX (PARACETAMOL) [Concomitant]
  10. RISPERDAL [Concomitant]
  11. TEMAZEPAM [Concomitant]

REACTIONS (2)
  - INTESTINAL OBSTRUCTION [None]
  - LETHARGY [None]
